FAERS Safety Report 4698069-2 (Version None)
Quarter: 2005Q2

REPORT INFORMATION
  Report Type: 
  Country: None (occurrence: None)
  Receive Date: 20050621
  Receipt Date: 20050608
  Transmission Date: 20051028
  Serious: Yes (Death, Hospitalization, Disabling)
  Sender: FDA-Public Use
  Company Number: 2005074299

PATIENT
  Age: 62 Year
  Sex: Male
  Weight: 64 kg

DRUGS (16)
  1. CYKLOKAPRON [Suspect]
     Indication: HAEMORRHAGE
     Dosage: 1280 MG 1 IN 1 D), INTRAVENOUS
     Route: 042
     Dates: start: 20041215, end: 20041215
  2. GENTAMICIN [Suspect]
     Indication: ILL-DEFINED DISORDER
     Dosage: 240 MG (1 IN 1 D), INTRAVENOUS
     Route: 042
  3. MORPHINE [Concomitant]
  4. PERSANTIN [Concomitant]
  5. NORVASC [Concomitant]
  6. APYDAN (AMMONIUM BROMIDE, CAFFEINE, PHENOBARBITAL, PHENYTOIN, SODIUM B [Concomitant]
  7. ASPIRIN [Concomitant]
  8. CENTYL MED KALIUMCHLORID (BENDROFLUMETHIAZIDE, POTASSIUM CHLORIDE) [Concomitant]
  9. SODIUM CHLORIDE 0.9% [Concomitant]
  10. NICOTINELL (NICOTINE) [Concomitant]
  11. SIMVASTATIN [Concomitant]
  12. CORODIL (ENALAPRIL) [Concomitant]
  13. INNOHEP [Concomitant]
  14. DICLOXACILLIN SODIUM MONOHYDRATE [Concomitant]
  15. ACETAMINOPHEN [Concomitant]
  16. HEXAMYCIN (GENTAMICIN SULFATE) [Concomitant]

REACTIONS (28)
  - APNOEA [None]
  - AREFLEXIA [None]
  - BLOOD CREATININE INCREASED [None]
  - BLOOD SODIUM DECREASED [None]
  - CEREBRAL INFARCTION [None]
  - CEREBROVASCULAR ACCIDENT [None]
  - CHEYNE-STOKES RESPIRATION [None]
  - CONVULSION [None]
  - DEPRESSED LEVEL OF CONSCIOUSNESS [None]
  - HAEMOGLOBIN DECREASED [None]
  - HEART RATE INCREASED [None]
  - HYPERTENSION [None]
  - HYPOTENSION [None]
  - LABORATORY TEST ABNORMAL [None]
  - LOSS OF CONSCIOUSNESS [None]
  - LUNG INFECTION [None]
  - METABOLIC ACIDOSIS [None]
  - MUSCLE RIGIDITY [None]
  - MYDRIASIS [None]
  - PARESIS [None]
  - PUPILLARY REFLEX IMPAIRED [None]
  - RALES [None]
  - RENAL FUNCTION TEST ABNORMAL [None]
  - RENAL TUBULAR DISORDER [None]
  - SNORING [None]
  - UNRESPONSIVE TO PAIN STIMULI [None]
  - UNRESPONSIVE TO VERBAL STIMULI [None]
  - URINE OUTPUT DECREASED [None]
